FAERS Safety Report 5444690-3 (Version None)
Quarter: 2007Q3

REPORT INFORMATION
  Report Type: 
  Country: None (occurrence: None)
  Receive Date: 20070904
  Receipt Date: 20070904
  Transmission Date: 20080115
  Serious: Yes (Other)
  Sender: FDA-Public Use
  Company Number: None

PATIENT
  Age: 5 Year
  Sex: Female
  Weight: 20.4119 kg

DRUGS (1)
  1. ZYRTEC [Suspect]
     Indication: MULTIPLE ALLERGIES
     Dosage: 1 TEASPOONFUL DAILY PO
     Route: 048
     Dates: start: 20050301, end: 20070829

REACTIONS (7)
  - ANGER [None]
  - DEPRESSED MOOD [None]
  - FATIGUE [None]
  - HALLUCINATION, AUDITORY [None]
  - MENTAL DISORDER [None]
  - NIGHTMARE [None]
  - OPPOSITIONAL DEFIANT DISORDER [None]
